FAERS Safety Report 16062071 (Version 1)
Quarter: 2019Q1

REPORT INFORMATION
  Report Type: Spontaneous
  Country: HU (occurrence: HU)
  Receive Date: 20190312
  Receipt Date: 20190312
  Transmission Date: 20190418
  Serious: Yes (Other)
  Sender: FDA-Public Use
  Company Number: HU-BAYER-2019-046604

PATIENT
  Age: 41 Year
  Sex: Female

DRUGS (2)
  1. ACETYLSALICYLIC ACID (CARDIO) [Suspect]
     Active Substance: ASPIRIN
  2. LOW MOLECULAR WEIGHT HEPARIN [Suspect]
     Active Substance: UNSPECIFIED INGREDIENT

REACTIONS (6)
  - Off label use [None]
  - Labelled drug-drug interaction medication error [None]
  - Exposure during pregnancy [None]
  - Haemorrhage in pregnancy [None]
  - Premature delivery [None]
  - Product use in unapproved indication [None]
